FAERS Safety Report 9919279 (Version 6)
Quarter: 2014Q3

REPORT INFORMATION
  Report Type: Spontaneous
  Country: IT (occurrence: IT)
  Receive Date: 20140224
  Receipt Date: 20140721
  Transmission Date: 20150326
  Serious: Yes (Hospitalization)
  Sender: FDA-Public Use
  Company Number: IT-JNJFOC-20140211325

PATIENT
  Age: 52 Year
  Sex: Female

DRUGS (9)
  1. MATRIFEN [Suspect]
     Active Substance: FENTANYL
     Indication: ARTHROPATHY
     Route: 062
     Dates: start: 20130101, end: 20131204
  2. DICLOFENAC [Concomitant]
     Active Substance: DICLOFENAC
     Indication: PAIN
  3. PALEXIA [Suspect]
     Active Substance: TAPENTADOL HYDROCHLORIDE
     Indication: ARTHROPATHY
     Route: 048
     Dates: start: 20130101, end: 20131204
  4. CONTRAMAL [Suspect]
     Active Substance: TRAMADOL HYDROCHLORIDE
     Indication: ARTHROPATHY
     Route: 048
     Dates: start: 20130101, end: 20131204
  5. CONTRAMAL [Suspect]
     Active Substance: TRAMADOL HYDROCHLORIDE
     Indication: ARTHROPATHY
     Dosage: 100
     Route: 030
     Dates: start: 20130101, end: 20131204
  6. MUSCORIL [Concomitant]
     Active Substance: THIOCOLCHICOSIDE
     Indication: PAIN
     Route: 051
  7. TAUXIB [Concomitant]
     Active Substance: ETORICOXIB
     Indication: PAIN
     Route: 048
  8. BRUFEN [Concomitant]
     Active Substance: IBUPROFEN
     Indication: PAIN
  9. HALCION [Concomitant]
     Active Substance: TRIAZOLAM
     Indication: PAIN
     Route: 048

REACTIONS (3)
  - Drug abuse [Recovered/Resolved]
  - Delirium [Recovered/Resolved]
  - Drug ineffective [Recovered/Resolved]

NARRATIVE: CASE EVENT DATE: 20131204
